FAERS Safety Report 4423432-4 (Version None)
Quarter: 2004Q3

REPORT INFORMATION
  Report Type: 
  Country: None (occurrence: None)
  Receive Date: 20040806
  Receipt Date: 20040726
  Transmission Date: 20050211
  Serious: Yes (Hospitalization)
  Sender: FDA-Public Use
  Company Number: 2004225238FR

PATIENT
  Age: 79 Year
  Sex: Male
  Weight: 64 kg

DRUGS (14)
  1. PACLITAXEL [Suspect]
     Indication: BRONCHIAL CARCINOMA
     Dosage: 300 MG, CYCLIC, IV
     Route: 042
     Dates: start: 20040511, end: 20040601
  2. CARBOPLATIN [Suspect]
     Indication: BRONCHIAL CARCINOMA
     Dosage: 310 MG, CYCLIC , IV
     Route: 042
     Dates: start: 20040511, end: 20040601
  3. SOLU-MEDROL [Suspect]
     Dosage: 120 MG, IV
     Route: 042
     Dates: start: 20040601
  4. RANITIDINE HCL [Suspect]
     Dosage: 50 MG, IV
     Route: 042
     Dates: start: 20040601
  5. POLARAMINE [Suspect]
     Dosage: 5 MG , IV
     Route: 042
     Dates: start: 20040601
  6. ONDANSETRON HYDROCHLORIDE [Suspect]
     Dosage: 8 MG, IV
     Route: 042
     Dates: start: 20040601
  7. SOLUPRED(PREDNISOLONE SODIUM SULFOBENZOATE) [Concomitant]
  8. DURAGESIC [Concomitant]
  9. SEVREDOL [Concomitant]
  10. MOVICOL [Concomitant]
  11. PERISTALTINE (CASCARA DRY EXTRACT) [Concomitant]
  12. ZOLOFT [Concomitant]
  13. IMOVANE [Concomitant]
  14. TARDYFERON [Concomitant]

REACTIONS (6)
  - BLOOD PRESSURE DECREASED [None]
  - CHILLS [None]
  - HAEMOGLOBIN DECREASED [None]
  - HYPERTHERMIA [None]
  - NEUTROPHIL COUNT INCREASED [None]
  - RESPIRATORY RATE INCREASED [None]
